FAERS Safety Report 5033400-X (Version None)
Quarter: 2006Q2

REPORT INFORMATION
  Report Type: 
  Country: None (occurrence: None)
  Receive Date: 20060623
  Receipt Date: 20060605
  Transmission Date: 20061013
  Serious: Yes (Hospitalization)
  Sender: FDA-Public Use
  Company Number: US-AVENTIS-200615910GDDC

PATIENT
  Age: 70 Year
  Sex: Male
  Weight: 80.4 kg

DRUGS (11)
  1. TAXOTERE [Suspect]
     Indication: NON-SMALL CELL LUNG CANCER
     Route: 042
     Dates: start: 20060530, end: 20060530
  2. CISPLATIN [Suspect]
     Indication: NON-SMALL CELL LUNG CANCER
     Route: 042
     Dates: start: 20060530, end: 20060530
  3. DEXAMETHASONE TAB [Concomitant]
     Dosage: DOSE: UNK
  4. VERAPAMIL [Concomitant]
  5. OMEPRAZOLE [Concomitant]
  6. SIMVASTATIN [Concomitant]
  7. AZITHROMYCIN [Concomitant]
     Dosage: DOSE: UNK
  8. SEREVENT [Concomitant]
     Dosage: DOSE: UNK
  9. FLOVENT [Concomitant]
     Dosage: DOSE: UNK
  10. ALBUTEROL [Concomitant]
     Dosage: DOSE: UNK
  11. HYDROCODONE [Concomitant]
     Dosage: DOSE: UNK

REACTIONS (18)
  - ASTHENIA [None]
  - BENIGN PROSTATIC HYPERPLASIA [None]
  - CANDIDIASIS [None]
  - DIARRHOEA [None]
  - DYSPHAGIA [None]
  - DYSURIA [None]
  - FEBRILE NEUTROPENIA [None]
  - HAEMATOCRIT DECREASED [None]
  - HAEMOGLOBIN DECREASED [None]
  - MUCOSAL INFLAMMATION [None]
  - NEUTROPENIA [None]
  - ORAL PAIN [None]
  - PHARYNGOLARYNGEAL PAIN [None]
  - PLATELET COUNT DECREASED [None]
  - RED BLOOD CELL COUNT DECREASED [None]
  - ULCER [None]
  - URINARY RETENTION [None]
  - WHITE BLOOD CELL COUNT DECREASED [None]
